FAERS Safety Report 5564524-6 (Version None)
Quarter: 2007Q4

REPORT INFORMATION
  Report Type: 
  Country: None (occurrence: None)
  Receive Date: 20071218
  Receipt Date: 20071207
  Transmission Date: 20080405
  Serious: Yes (Hospitalization, Other)
  Sender: FDA-Public Use
  Company Number: GB-JNJFOC-20071202750

PATIENT
  Sex: Female
  Weight: 48 kg

DRUGS (11)
  1. REMICADE [Suspect]
     Indication: RHEUMATOID ARTHRITIS
     Route: 042
  2. METHOTREXATE [Concomitant]
  3. ASPIRIN [Concomitant]
  4. ATENOLOL [Concomitant]
  5. CLOPIDOGREL [Concomitant]
  6. GTN SPRAY [Concomitant]
  7. LANSOPRAZOLE [Concomitant]
  8. LISINOPRIL [Concomitant]
  9. PLAQUENIL [Concomitant]
  10. RISEDRONATE SODIUM [Concomitant]
  11. ISMIN [Concomitant]

REACTIONS (2)
  - LOCALISED INFECTION [None]
  - REMOVAL OF FOREIGN BODY [None]
